FAERS Safety Report 13974223 (Version 1)
Quarter: 2017Q3

REPORT INFORMATION
  Report Type: Spontaneous
  Country: CA (occurrence: CA)
  Receive Date: 20170915
  Receipt Date: 20170915
  Transmission Date: 20171128
  Serious: Yes (Hospitalization, Other)
  Sender: FDA-Public Use
  Company Number: CA-TEVA-806761USA

PATIENT
  Sex: Male

DRUGS (3)
  1. PHENETHYLAMINE [Suspect]
     Active Substance: PHENETHYLAMINE
     Indication: INFERTILITY MALE
     Dosage: ADD 13 PACKAGES TO 2 CUPS OF BOILING WATER AND DRINK ONCE DAILY FOR 14 DAYS
     Route: 048
  2. MYCOPHENOLIC ACID. [Suspect]
     Active Substance: MYCOPHENOLIC ACID
     Indication: INFERTILITY MALE
     Dosage: ADD 13 PACKAGES TO 2 CUPS OF BOILING WATER AND DRINK ONCE DAILY FOR 14 DAYS
     Route: 048
  3. DIGOXIN. [Suspect]
     Active Substance: DIGOXIN
     Indication: INFERTILITY MALE
     Dosage: ADD 13 PACKAGES TO 2 CUPS OF BOILING WATER AND DRINK ONCE DAILY FOR 14 DAYS
     Route: 048

REACTIONS (4)
  - Atrioventricular block complete [Recovering/Resolving]
  - Toxicity to various agents [Recovering/Resolving]
  - Myocarditis [Recovering/Resolving]
  - Cardiac failure [Recovering/Resolving]
